FAERS Safety Report 5697660-4 (Version None)
Quarter: 2008Q2

REPORT INFORMATION
  Report Type: 
  Country: None (occurrence: None)
  Receive Date: 20080403
  Receipt Date: 20070820
  Transmission Date: 20081010
  Serious: Yes (Other)
  Sender: FDA-Public Use
  Company Number: 2007-0013101

PATIENT
  Age: 58 Year
  Sex: Female
  Weight: 59 kg

DRUGS (6)
  1. TRUVADA [Suspect]
     Indication: HIV INFECTION
     Dates: start: 20070401
  2. RITONVIR (RITONAVIR) [Concomitant]
  3. ATAZANAVIR SULFATE [Concomitant]
  4. FOSAMAX [Concomitant]
  5. PERCOCET [Concomitant]
  6. FENTANYL PATCH (FENTANYL CITRATE) [Concomitant]

REACTIONS (1)
  - RENAL TUBULAR DISORDER [None]
